FAERS Safety Report 24602611 (Version 1)
Quarter: 2024Q4

REPORT INFORMATION
  Report Type: Spontaneous
  Country: IL (occurrence: IL)
  Receive Date: 20241111
  Receipt Date: 20241111
  Transmission Date: 20250114
  Serious: Yes (Hospitalization, Other)
  Sender: NOVARTIS
  Company Number: IL-002147023-NVSC2024IL215875

PATIENT
  Age: 61 Year
  Sex: Male

DRUGS (1)
  1. TASIGNA [Suspect]
     Active Substance: NILOTINIB
     Indication: Chronic myeloid leukaemia
     Dosage: UNK (USED TSIGANA YEARS AGO)
     Route: 065

REACTIONS (4)
  - Pulmonary oedema [Unknown]
  - Skin infection [Unknown]
  - Pustule [Unknown]
  - Dermatitis [Unknown]
